FAERS Safety Report 16862556 (Version 2)
Quarter: 2019Q4

REPORT INFORMATION
  Report Type: Spontaneous
  Country: AT (occurrence: AT)
  Receive Date: 20190927
  Receipt Date: 20191017
  Transmission Date: 20200122
  Serious: Yes (Other)
  Sender: FDA-Public Use
  Company Number: AT-PFIZER INC-2019409941

PATIENT
  Sex: Male

DRUGS (9)
  1. PANITUMUMAB [Suspect]
     Active Substance: PANITUMUMAB
     Dosage: 6 MG/KG, UNK
     Dates: start: 20190327, end: 20190605
  2. OXALIPLATIN. [Suspect]
     Active Substance: OXALIPLATIN
     Indication: RECTAL CANCER
     Dosage: UNK
     Route: 065
  3. IRINOTECAN HCL [Suspect]
     Active Substance: IRINOTECAN HYDROCHLORIDE
     Indication: RECTAL CANCER
     Dosage: UNK
     Route: 065
  4. FOLINIC ACID [Suspect]
     Active Substance: LEUCOVORIN
     Indication: RECTAL CANCER
     Dosage: UNK
     Route: 065
  5. BIOCEF [CEFPODOXIME PROXETIL] [Suspect]
     Active Substance: CEFPODOXIME PROXETIL
     Indication: RECTAL CANCER
  6. FLUOROURACIL. [Suspect]
     Active Substance: FLUOROURACIL
     Indication: RECTAL CANCER
     Dosage: UNK
     Route: 065
  7. FLUOROURACIL. [Suspect]
     Active Substance: FLUOROURACIL
     Dosage: UNK
     Route: 042
     Dates: start: 20180820
  8. PANITUMUMAB [Suspect]
     Active Substance: PANITUMUMAB
     Indication: RECTAL CANCER
     Dosage: UNK
     Route: 065
  9. VECTIBIX [Suspect]
     Active Substance: PANITUMUMAB
     Indication: RECTAL CANCER
     Dosage: UNK
     Route: 042
     Dates: start: 20191001

REACTIONS (11)
  - Hilar lymphadenopathy [Unknown]
  - Hepatic cyst [Unknown]
  - Neoplasm progression [Unknown]
  - Pulmonary mass [Unknown]
  - BRAF V600E mutation positive [Unknown]
  - Cholestasis [Unknown]
  - Pleural effusion [Unknown]
  - Hydronephrosis [Unknown]
  - Colitis [Unknown]
  - Lymphadenopathy mediastinal [Unknown]
  - Ileus [Unknown]

NARRATIVE: CASE EVENT DATE: 201807
